FAERS Safety Report 4486066-1 (Version None)
Quarter: 2004Q4

REPORT INFORMATION
  Report Type: 
  Country: None (occurrence: None)
  Receive Date: 20041021
  Receipt Date: 20041008
  Transmission Date: 20050328
  Serious: Yes (Hospitalization, Disabling, Other)
  Sender: FDA-Public Use
  Company Number: 2004060002

PATIENT
  Age: 90 Year
  Sex: Female
  Weight: 48 kg

DRUGS (10)
  1. NEURONTIN [Suspect]
     Indication: TRIGEMINAL NEURALGIA
     Dosage: 400 MG (200 MG, 2 IN 1 D),ORAL
     Route: 048
     Dates: start: 20040823, end: 20040908
  2. TOLTERODINE (TOLTERODINE) [Concomitant]
  3. CARBAMAZEPINE [Concomitant]
  4. ACETAMINOPHEN [Concomitant]
  5. FRUMIL (AMILORIDE HYDROCHLRORIDE, FUROSEMIDE) [Concomitant]
  6. NULYTELY (MACROGOL, POTASSIUM CHORIDE, SODIUM BICARBONATE, SODIUM CHLO [Concomitant]
  7. LEKOVIT CA (CALCIUM CARBONATE, COLECALCIFEROL) [Concomitant]
  8. AMOXICILLIN [Concomitant]
  9. CIPROFLOXACIN [Concomitant]
  10. TRAMADOL HCL [Concomitant]

REACTIONS (6)
  - ABNORMAL BEHAVIOUR [None]
  - CIRCULATORY COLLAPSE [None]
  - CREATININE RENAL CLEARANCE DECREASED [None]
  - FALL [None]
  - FLATULENCE [None]
  - LOSS OF CONSCIOUSNESS [None]
